FAERS Safety Report 9879338 (Version 2)
Quarter: 2014Q1

REPORT INFORMATION
  Report Type: Spontaneous
  Country: DE (occurrence: DE)
  Receive Date: 20140206
  Receipt Date: 20140325
  Transmission Date: 20141002
  Serious: Yes (Life-Threatening)
  Sender: FDA-Public Use
  Company Number: GXKR2014DE000760

PATIENT
  Age: 82 Year
  Sex: Female
  Weight: 69 kg

DRUGS (2)
  1. AMOCLAV [Suspect]
     Indication: PNEUMONIA
     Route: 048
     Dates: start: 20140122, end: 20140128
  2. VIMPAT [Suspect]
     Indication: EPILEPSY
     Dosage: DAILY DOSE: 100 MG MILLGRAM(S) EVERY DAYS
     Route: 048
     Dates: start: 20140123, end: 20140128

REACTIONS (1)
  - Blood creatinine increased [Unknown]
